FAERS Safety Report 11282315 (Version 1)
Quarter: 2015Q3

REPORT INFORMATION
  Report Type: Spontaneous
  Country: GB (occurrence: GB)
  Receive Date: 20150720
  Receipt Date: 20150720
  Transmission Date: 20151125
  Serious: Yes (Congenital Anomaly, Other)
  Sender: FDA-Public Use
  Company Number: GB-CIPLA LTD.-2015GB05813

PATIENT

DRUGS (16)
  1. GABAPENTIN. [Suspect]
     Active Substance: GABAPENTIN
     Route: 064
  2. PHENYTOIN. [Suspect]
     Active Substance: PHENYTOIN
     Route: 064
  3. CLOBAZAM [Suspect]
     Active Substance: CLOBAZAM
     Route: 065
  4. PHENOBARBITAL. [Suspect]
     Active Substance: PHENOBARBITAL
     Route: 064
  5. LAMOTRIGINE. [Suspect]
     Active Substance: LAMOTRIGINE
     Route: 064
  6. ETHOSUXIMIDE. [Suspect]
     Active Substance: ETHOSUXIMIDE
     Route: 064
  7. PREGABALIN. [Suspect]
     Active Substance: PREGABALIN
     Route: 064
  8. SODIUM VALPROATE [Suspect]
     Active Substance: VALPROATE SODIUM
     Route: 064
  9. PRIMIDONE. [Suspect]
     Active Substance: PRIMIDONE
     Route: 064
  10. LEVEPSY [Suspect]
     Active Substance: LEVETIRACETAM
     Route: 064
  11. CLONAZEPAM. [Suspect]
     Active Substance: CLONAZEPAM
     Route: 064
  12. ZONISAMIDE. [Suspect]
     Active Substance: ZONISAMIDE
     Route: 064
  13. TOPIRAMATE. [Suspect]
     Active Substance: TOPIRAMATE
     Route: 064
  14. CARBAMAZEPINE. [Suspect]
     Active Substance: CARBAMAZEPINE
     Route: 064
  15. VIGABATRIN [Suspect]
     Active Substance: VIGABATRIN
     Route: 064
  16. LACOSAMIDE [Suspect]
     Active Substance: LACOSAMIDE
     Route: 064

REACTIONS (2)
  - Congenital neurological disorder [Unknown]
  - Foetal exposure during pregnancy [Unknown]
